FAERS Safety Report 7746961-4 (Version None)
Quarter: 2011Q3

REPORT INFORMATION
  Report Type: 
  Country: None (occurrence: None)
  Receive Date: 20110913
  Receipt Date: 20110902
  Transmission Date: 20111222
  Serious: Yes (Hospitalization)
  Sender: FDA-Public Use
  Company Number: PHHY2011AT78676

PATIENT
  Age: 41 Year
  Sex: Female

DRUGS (1)
  1. METHERGINE [Suspect]
     Dosage: 5 ML, UNK
     Route: 048
     Dates: start: 20030704

REACTIONS (5)
  - ACCIDENTAL EXPOSURE [None]
  - HEADACHE [None]
  - DIZZINESS [None]
  - ABDOMINAL PAIN [None]
  - NAUSEA [None]
